FAERS Safety Report 18520628 (Version 1)
Quarter: 2020Q4

REPORT INFORMATION
  Report Type: Spontaneous
  Country: US (occurrence: US)
  Receive Date: 20201119
  Receipt Date: 20201119
  Transmission Date: 20210114
  Serious: No
  Sender: FDA-Public Use
  Company Number: US-CIPLA LTD.-2020US06854

PATIENT

DRUGS (3)
  1. METFORMIN [Concomitant]
     Active Substance: METFORMIN HYDROCHLORIDE
     Indication: DIABETES MELLITUS
     Dosage: 1000 MILLIGRAM, BID, SINCE 8 YEARS
     Route: 065
  2. DICLOFENAC [Suspect]
     Active Substance: DICLOFENAC
     Indication: OSTEOARTHRITIS
     Dosage: 2 MILLIGRAM, BID, 6 HOURS APART
     Route: 061
     Dates: start: 20200908, end: 20200915
  3. CORTISONE [Concomitant]
     Active Substance: CORTISONE
     Indication: OSTEOARTHRITIS
     Dosage: UNK
     Route: 065
     Dates: end: 20200807

REACTIONS (4)
  - Groin pain [Unknown]
  - Product use in unapproved indication [Unknown]
  - Off label use [Unknown]
  - Ligament pain [Unknown]

NARRATIVE: CASE EVENT DATE: 202009
